FAERS Safety Report 22981306 (Version 3)
Quarter: 2024Q4

REPORT INFORMATION
  Report Type: Spontaneous
  Country: US (occurrence: US)
  Receive Date: 20230925
  Receipt Date: 20241231
  Transmission Date: 20250114
  Serious: Yes (Other)
  Sender: ELI LILLY AND COMPANY
  Company Number: US-ELI_LILLY_AND_COMPANY-US202309008304

PATIENT

DRUGS (3)
  1. BEBTELOVIMAB [Suspect]
     Active Substance: BEBTELOVIMAB
     Indication: COVID-19
     Dosage: UNK UNK, UNKNOWN
     Route: 065
     Dates: start: 20220425
  2. COVID-19 VACCINE [Concomitant]
     Indication: Product used for unknown indication
     Dosage: UNK UNK, UNKNOWN (1 VAX, 2 BOOSTERS)
     Route: 065
     Dates: start: 20230105
  3. ASPIRIN [Concomitant]
     Active Substance: ASPIRIN
     Indication: Product used for unknown indication
     Dosage: UNK UNK, UNKNOWN
     Route: 065

REACTIONS (9)
  - Fall [Unknown]
  - Hip fracture [Unknown]
  - Fatigue [Unknown]
  - Diarrhoea [Unknown]
  - Brain fog [Unknown]
  - Psoriasis [Unknown]
  - Arthritis [Unknown]
  - Purpura [Unknown]
  - Procedural pain [Unknown]

NARRATIVE: CASE EVENT DATE: 20221209
